FAERS Safety Report 8922810 (Version 1)
Quarter: 2012Q4

REPORT INFORMATION
  Report Type: Spontaneous
  Country: US (occurrence: None)
  Receive Date: 20121115
  Receipt Date: 20121115
  Transmission Date: 20130627
  Serious: No
  Sender: FDA-Public Use
  Company Number: None

PATIENT
  Age: 80 Year
  Sex: Female
  Weight: 61.24 kg

DRUGS (2)
  1. VESICARE NO ^STRENGTH^ ON LABEL ASTELLAS PHARMA [Suspect]
     Indication: INCONTINENCE OF URINE
     Route: 048
     Dates: start: 20120816, end: 20121025
  2. VESICARE NO ^STRENGTH^ ON LABEL ASTELLAS PHARMA [Suspect]
     Indication: URINARY URGENCY
     Route: 048
     Dates: start: 20120816, end: 20121025

REACTIONS (3)
  - Urticaria [None]
  - Rash macular [None]
  - Pruritus [None]
